FAERS Safety Report 5671912-6 (Version None)
Quarter: 2008Q1

REPORT INFORMATION
  Report Type: 
  Country: None (occurrence: None)
  Receive Date: 20080319
  Receipt Date: 20080218
  Transmission Date: 20080703
  Serious: No
  Sender: FDA-Public Use
  Company Number: US-BAYER-200814149NA

PATIENT
  Sex: Female

DRUGS (8)
  1. PRECOSE [Suspect]
     Indication: DIABETES MELLITUS
     Dates: start: 20080201, end: 20080201
  2. TOPROL [Concomitant]
  3. LISINOPRIL [Concomitant]
  4. CARDIZEM [Concomitant]
  5. METFORMIN HCL [Concomitant]
  6. OXYCODONE HCL [Concomitant]
     Indication: ARTHRALGIA
  7. ULTRAM [Concomitant]
  8. ALBUTEROL [Concomitant]

REACTIONS (1)
  - HYPOAESTHESIA [None]
